FAERS Safety Report 7440188-1 (Version None)
Quarter: 2011Q2

REPORT INFORMATION
  Report Type: 
  Country: None (occurrence: None)
  Receive Date: 20110427
  Receipt Date: 20110420
  Transmission Date: 20111010
  Serious: Yes (Hospitalization, Other)
  Sender: FDA-Public Use
  Company Number: GB-BAXTER-2011BH006977

PATIENT
  Age: 63 Year
  Sex: Male
  Weight: 85 kg

DRUGS (25)
  1. AMITRIPTYLINE [Concomitant]
  2. ASACOL [Concomitant]
  3. SERETIDE MITE [Concomitant]
  4. ANTIBIOTICS [Concomitant]
     Indication: RESPIRATORY TRACT INFECTION
  5. GAMMAGARD LIQUID [Suspect]
     Route: 042
     Dates: start: 20101102, end: 20110215
  6. METFORMIN [Concomitant]
  7. NICORANDIL [Concomitant]
  8. GLYCERYL TRINITRATE [Concomitant]
  9. NOVOMIX [Concomitant]
  10. GAMMAGARD LIQUID [Suspect]
     Indication: HYPOGAMMAGLOBULINAEMIA
     Route: 065
  11. GAMMAGARD LIQUID [Suspect]
     Route: 042
     Dates: start: 20101102, end: 20110215
  12. ALBUTEROL SULFATE AUTOHALER [Concomitant]
  13. DILTIAZEM [Concomitant]
  14. BUPRENORPHINE [Concomitant]
  15. ISOTARD [Concomitant]
  16. PREDNISOLONE [Concomitant]
  17. SIMVASTATIN [Concomitant]
  18. TELMISARTAN [Concomitant]
  19. TIOTROPIUM [Concomitant]
  20. HEPARIN [Concomitant]
  21. CETIRIZINE HCL [Concomitant]
  22. ESOMEPRAZOLE [Concomitant]
  23. CARBOCISTEINE [Concomitant]
  24. DOXYCYCLINE [Concomitant]
  25. IPRATROPIUM BROMIDE [Concomitant]

REACTIONS (5)
  - FEELING COLD [None]
  - PERIPHERAL COLDNESS [None]
  - THROMBOSIS [None]
  - HYPERAESTHESIA [None]
  - HYPOAESTHESIA [None]
